FAERS Safety Report 12877799 (Version 5)
Quarter: 2016Q4

REPORT INFORMATION
  Report Type: Spontaneous
  Country: US (occurrence: US)
  Receive Date: 20161024
  Receipt Date: 20161222
  Transmission Date: 20170207
  Serious: No
  Sender: FDA-Public Use
  Company Number: US-PFIZER INC-2016490485

PATIENT

DRUGS (5)
  1. MARCAINE [Suspect]
     Active Substance: BUPIVACAINE HYDROCHLORIDE
     Dosage: (W/DEX 2ML AMP)
  2. LIDOCAINE HCL [Suspect]
     Active Substance: LIDOCAINE HYDROCHLORIDE
     Dosage: UNK, (5ML AMP)
  3. EPINEPHRINE. [Suspect]
     Active Substance: EPINEPHRINE
     Dosage: (1ML)
  4. LIDOCAINE HCL [Suspect]
     Active Substance: LIDOCAINE HYDROCHLORIDE
     Dosage: (5ML AMP)
  5. LIDOCAINE HCL [Suspect]
     Active Substance: LIDOCAINE HYDROCHLORIDE
     Dosage: UNK, (5ML AMP)

REACTIONS (2)
  - Drug effect decreased [Unknown]
  - Drug effect delayed [Unknown]
